FAERS Safety Report 7419866-6 (Version None)
Quarter: 2011Q2

REPORT INFORMATION
  Report Type: 
  Country: None (occurrence: None)
  Receive Date: 20110418
  Receipt Date: 20110405
  Transmission Date: 20111010
  Serious: Yes (Other)
  Sender: FDA-Public Use
  Company Number: JP-JNJFOC-20110402605

PATIENT

DRUGS (4)
  1. DOXORUBICIN HCL [Suspect]
     Indication: OESOPHAGEAL SQUAMOUS CELL CARCINOMA
     Dosage: 1-H INFUSION ON DAY ONE
     Route: 042
  2. CISPLATIN [Suspect]
     Indication: OESOPHAGEAL SQUAMOUS CELL CARCINOMA
     Dosage: ON DAYS 1-5
     Route: 065
  3. FLUOROURACIL [Suspect]
     Indication: OESOPHAGEAL SQUAMOUS CELL CARCINOMA
     Dosage: ADMINISTERED ON DAYS 1-5
     Route: 065
  4. RADIOTHERAPY [Suspect]
     Indication: OESOPHAGEAL SQUAMOUS CELL CARCINOMA
     Dosage: ON DAYS 1-5
     Route: 065

REACTIONS (3)
  - PLEURAL EFFUSION [None]
  - PERICARDIAL EFFUSION [None]
  - OFF LABEL USE [None]
